FAERS Safety Report 14261601 (Version 1)
Quarter: 2017Q4

REPORT INFORMATION
  Report Type: Spontaneous
  Country: US (occurrence: US)
  Receive Date: 20171207
  Receipt Date: 20171207
  Transmission Date: 20180321
  Serious: Yes (Hospitalization)
  Sender: FDA-Public Use
  Company Number: None

PATIENT
  Age: 61 Year
  Weight: 81 kg

DRUGS (9)
  1. LIPITOR [Concomitant]
     Active Substance: ATORVASTATIN CALCIUM
  2. SPIRONOLACTONE. [Concomitant]
     Active Substance: SPIRONOLACTONE
  3. FUROSEMIDE. [Concomitant]
     Active Substance: FUROSEMIDE
  4. BUPROPION. [Concomitant]
     Active Substance: BUPROPION
  5. ASPIRIN. [Concomitant]
     Active Substance: ASPIRIN
  6. LISINOPRIL. [Concomitant]
     Active Substance: LISINOPRIL
  7. CARVEDILOL. [Concomitant]
     Active Substance: CARVEDILOL
  8. CONTRAST [Concomitant]
     Active Substance: UNSPECIFIED INGREDIENT
  9. CEPHALOSPORIN [Suspect]
     Active Substance: UNSPECIFIED INGREDIENT
     Indication: KNEE ARTHROPLASTY
     Dates: start: 20171206, end: 20171206

REACTIONS (4)
  - Heart rate increased [None]
  - Blood pressure decreased [None]
  - Resuscitation [None]
  - Anaphylactic shock [None]

NARRATIVE: CASE EVENT DATE: 20171206
